FAERS Safety Report 13660335 (Version 1)
Quarter: 2017Q2

REPORT INFORMATION
  Report Type: Spontaneous
  Country: None (occurrence: US)
  Receive Date: 20170615
  Receipt Date: 20170615
  Transmission Date: 20170830
  Serious: No
  Sender: FDA-Public Use
  Company Number: None

PATIENT
  Age: 66 Year
  Sex: Male

DRUGS (1)
  1. HUMIRA [Suspect]
     Active Substance: ADALIMUMAB
     Indication: PSORIASIS
     Route: 058
     Dates: start: 20161012, end: 20170614

REACTIONS (4)
  - Pain [None]
  - Myalgia [None]
  - Vision blurred [None]
  - Arthralgia [None]

NARRATIVE: CASE EVENT DATE: 20170614
